FAERS Safety Report 7809133-0 (Version None)
Quarter: 2011Q4

REPORT INFORMATION
  Report Type: 
  Country: None (occurrence: None)
  Receive Date: 20111012
  Receipt Date: 20110930
  Transmission Date: 20120403
  Serious: Yes (Hospitalization)
  Sender: FDA-Public Use
  Company Number: FR-JNJFOC-20111004206

PATIENT
  Sex: Female

DRUGS (8)
  1. NAPROSYN [Concomitant]
     Route: 065
     Dates: start: 20110516, end: 20110516
  2. ESCITALOPRAM OXALATE [Concomitant]
     Route: 065
     Dates: start: 20110516, end: 20110516
  3. ALCOHOL [Concomitant]
     Route: 065
     Dates: start: 20110516, end: 20110516
  4. IMOVANE [Concomitant]
     Route: 065
  5. ACETAMINOPHEN AND TRAMADOL HCL [Suspect]
     Indication: PRODUCT USED FOR UNKNOWN INDICATION
     Route: 048
     Dates: start: 20110516, end: 20110516
  6. PRAZEPAM [Suspect]
     Indication: ANXIETY
     Route: 048
     Dates: start: 20110516, end: 20110516
  7. GALVUS [Concomitant]
     Route: 065
     Dates: start: 20110516, end: 20110516
  8. STRESAM [Concomitant]
     Route: 065
     Dates: start: 20110516, end: 20110516

REACTIONS (2)
  - MULTIPLE DRUG OVERDOSE INTENTIONAL [None]
  - SUICIDE ATTEMPT [None]
